FAERS Safety Report 4824830-7 (Version None)
Quarter: 2005Q4

REPORT INFORMATION
  Report Type: 
  Country: None (occurrence: None)
  Receive Date: 20051012
  Receipt Date: 20050628
  Transmission Date: 20060501
  Serious: Yes (Other)
  Sender: FDA-Public Use
  Company Number: 2005S1000142

PATIENT
  Age: 71 Year
  Sex: 0
  Weight: 79 kg

DRUGS (6)
  1. CUBICIN [Suspect]
     Indication: CELLULITIS
     Dosage: 316 MG; X1; IV
     Route: 042
     Dates: start: 20050618, end: 20050618
  2. BENAZEPRIL HCL [Concomitant]
  3. ATENOLOL [Concomitant]
  4. ISOSORBIDE [Concomitant]
  5. ACETAMINOPHEN [Concomitant]
  6. ASPIRIN [Concomitant]

REACTIONS (2)
  - DIZZINESS [None]
  - HYPOTENSION [None]
